FAERS Safety Report 22110763 (Version 1)
Quarter: 2023Q1

REPORT INFORMATION
  Report Type: Spontaneous
  Country: US (occurrence: None)
  Receive Date: 20230317
  Receipt Date: 20230317
  Transmission Date: 20230417
  Serious: Yes (Other)
  Sender: FDA-Public Use
  Company Number: None

PATIENT
  Age: 34 Year
  Sex: Female

DRUGS (1)
  1. DEXTROAMPHETAMINE [Suspect]
     Active Substance: DEXTROAMPHETAMINE
     Indication: Attention deficit hyperactivity disorder
     Dosage: FREQUENCY : TWICE A DAY;?
     Route: 048
     Dates: start: 20230306

REACTIONS (6)
  - Product substitution issue [None]
  - Wrong technique in product usage process [None]
  - Fatigue [None]
  - Ocular hyperaemia [None]
  - Thinking abnormal [None]
  - Suspected product contamination [None]

NARRATIVE: CASE EVENT DATE: 20230313
